FAERS Safety Report 15900063 (Version 1)
Quarter: 2019Q1

REPORT INFORMATION
  Report Type: Spontaneous
  Country: FR (occurrence: FR)
  Receive Date: 20190201
  Receipt Date: 20190201
  Transmission Date: 20190417
  Serious: Yes (Hospitalization)
  Sender: FDA-Public Use
  Company Number: FR-ASTRAZENECA-2019SE18735

PATIENT
  Age: 41 Year
  Sex: Female
  Weight: 92 kg

DRUGS (5)
  1. MINIDRIL [Suspect]
     Active Substance: ETHINYL ESTRADIOL\LEVONORGESTREL
     Route: 065
  2. ESOMEPRAZOLE MAGNESIUM. [Suspect]
     Active Substance: ESOMEPRAZOLE MAGNESIUM
     Route: 048
  3. SOLU-MEDROL [Suspect]
     Active Substance: METHYLPREDNISOLONE SODIUM SUCCINATE
     Indication: MULTIPLE SCLEROSIS
     Route: 041
     Dates: start: 20181218, end: 20181218
  4. TARDYFERON [Suspect]
     Active Substance: FERROUS SULFATE
     Route: 065
  5. ASPIRINE PROTECT [Suspect]
     Active Substance: ASPIRIN
     Route: 065

REACTIONS (3)
  - Sneezing [Recovered/Resolved]
  - Lacrimation increased [Recovered/Resolved]
  - Face oedema [Recovered/Resolved]

NARRATIVE: CASE EVENT DATE: 20181218
